FAERS Safety Report 9918282 (Version 2)
Quarter: 2014Q1

REPORT INFORMATION
  Report Type: Report from Study
  Country: BR (occurrence: BR)
  Receive Date: 20140224
  Receipt Date: 20140224
  Transmission Date: 20141002
  Serious: Yes (Other)
  Sender: FDA-Public Use
  Company Number: BR-ROCHE-1331059

PATIENT
  Age: 44 Year
  Sex: Female
  Weight: 75 kg

DRUGS (3)
  1. ACTEMRA [Suspect]
     Indication: RHEUMATOID ARTHRITIS
     Route: 065
     Dates: start: 20131201, end: 20131201
  2. ENBREL [Concomitant]
     Route: 058
  3. PREDNISONE [Concomitant]

REACTIONS (9)
  - Abdominal pain [Not Recovered/Not Resolved]
  - Ear pruritus [Recovered/Resolved]
  - Throat irritation [Recovered/Resolved]
  - Arrhythmia [Recovered/Resolved]
  - Tachycardia [Recovered/Resolved]
  - Hypertension [Recovered/Resolved]
  - Dry throat [Not Recovered/Not Resolved]
  - Erythema [Recovered/Resolved]
  - Erythema [Recovered/Resolved]
